FAERS Safety Report 9267420 (Version 7)
Quarter: 2013Q3

REPORT INFORMATION
  Report Type: Spontaneous
  Country: DK (occurrence: DK)
  Receive Date: 20130502
  Receipt Date: 20130710
  Transmission Date: 20140515
  Serious: Yes (Other)
  Sender: FDA-Public Use
  Company Number: DK-PFIZER INC-2013130869

PATIENT
  Age: 62 Year
  Sex: Female

DRUGS (52)
  1. VINORELBINE TARTRATE [Suspect]
     Dosage: 50 MG, UNK
     Route: 042
     Dates: start: 20051209
  2. VINORELBINE TARTRATE [Suspect]
     Dosage: 50 MG, UNK
     Route: 042
     Dates: start: 20060127
  3. VINORELBINE TARTRATE [Suspect]
     Dosage: 50 MG, UNK
     Dates: start: 20060220
  4. VINORELBINE TARTRATE [Suspect]
     Dosage: 55 MG, UNK
     Dates: start: 20060313
  5. VINORELBINE TARTRATE [Suspect]
     Route: 042
     Dates: start: 20060403
  6. VINORELBINE TARTRATE [Suspect]
     Dosage: 55 MG, UNK
     Dates: start: 20060515
  7. VINORELBINE TARTRATE [Suspect]
     Dosage: 55 MG, UNK
     Route: 042
     Dates: start: 20060606
  8. CARBOPLATIN [Suspect]
     Indication: PRODUCT USED FOR UNKNOWN INDICATION
     Dosage: UNK
     Route: 065
  9. HERCEPTIN [Suspect]
     Dosage: 500 MG, UNK
     Route: 042
     Dates: start: 20041122
  10. HERCEPTIN [Suspect]
     Dosage: 550 MG, UNK
     Route: 042
     Dates: start: 20051209
  11. HERCEPTIN [Suspect]
     Dosage: 400 MG, UNK
     Route: 042
     Dates: start: 20060127
  12. HERCEPTIN [Suspect]
     Dosage: 400 MG, UNK
     Dates: start: 20060220
  13. HERCEPTIN [Suspect]
     Dosage: 400 MG, UNK
     Route: 042
     Dates: start: 20060313
  14. HERCEPTIN [Suspect]
     Dosage: MONOTHERAPY
     Route: 065
     Dates: start: 20060925
  15. HERCEPTIN [Suspect]
     Dosage: MONOTHERAPY
     Route: 065
     Dates: start: 20061016
  16. HERCEPTIN [Suspect]
     Dosage: MONOTHERAPY
     Route: 065
     Dates: start: 20061106
  17. HERCEPTIN [Suspect]
     Dosage: 1500 MG MORNING AND 1800 MG EVENING
     Route: 065
  18. HERCEPTIN [Suspect]
     Dosage: 390 MG, UNK
     Route: 042
  19. HERCEPTIN [Suspect]
     Dosage: 270 MG, UNK
     Route: 042
  20. HERCEPTIN [Suspect]
     Route: 065
     Dates: start: 20080904
  21. HERCEPTIN [Suspect]
     Dosage: 270 MG, EVERY 2 WEEKS
     Route: 065
     Dates: start: 20081030, end: 20081124
  22. HERCEPTIN [Suspect]
     Route: 065
     Dates: start: 20120507
  23. HERCEPTIN [Suspect]
     Dosage: 400 MG, UNK
     Route: 042
     Dates: start: 20060403
  24. HERCEPTIN [Suspect]
     Dosage: UNK
     Dates: start: 20060515
  25. HERCEPTIN [Suspect]
     Dosage: UNK
     Route: 042
     Dates: start: 20060606
  26. HERCEPTIN [Suspect]
     Dosage: 2 MG/KG, UNK
     Route: 042
     Dates: start: 2008
  27. HERCEPTIN [Suspect]
     Dosage: UNK
     Dates: start: 20110418
  28. XELODA [Suspect]
     Indication: PRODUCT USED FOR UNKNOWN INDICATION
     Dosage: SERIES 1 AND 2: 2 GM FOR TWICE FROM DAY 1 TO 14 PER SERIES, SERIES 3 1.5 GM FOR TWICE FROM DAY 1 TO
     Route: 065
  29. XELODA [Suspect]
     Dosage: 1500 MG MORNING AND 1800 MG EVENING
     Route: 065
  30. XELODA [Suspect]
     Dosage: 1500 MG EVEINING AND 1300 MG MORNING
     Route: 065
  31. AVASTIN [Suspect]
     Indication: PRODUCT USED FOR UNKNOWN INDICATION
     Dosage: 10 MG/KG, EVERY 2 WEEKS
     Route: 065
     Dates: start: 200902
  32. TAXOTERE [Suspect]
     Indication: PRODUCT USED FOR UNKNOWN INDICATION
     Dosage: 130 MG, UNK
     Route: 042
     Dates: start: 20041123
  33. TAXOL [Suspect]
     Indication: PRODUCT USED FOR UNKNOWN INDICATION
     Dosage: 80 MG/M2, UNK
     Route: 065
     Dates: start: 2008
  34. TAXOL [Suspect]
     Dosage: 200 MG, UNK
     Route: 042
     Dates: start: 20080904
  35. TAXOL [Suspect]
     Dosage: 120 MG, WEEKLY
     Route: 065
     Dates: start: 20081030, end: 20081124
  36. TAXOL [Suspect]
     Dosage: 110 MG/M2, UNK
     Route: 065
  37. TAXOL [Suspect]
     Dosage: 200 MG, UNK
     Route: 042
  38. TAXOL [Suspect]
     Dosage: UNK
     Dates: start: 2009
  39. LAPATINIB DITOSYLATE [Suspect]
     Indication: PRODUCT USED FOR UNKNOWN INDICATION
     Dosage: MONOTHERAPY
     Route: 065
     Dates: start: 20090925, end: 201104
  40. LAPATINIB DITOSYLATE [Suspect]
     Dosage: 750 MG, UNK
     Route: 065
     Dates: start: 20120430
  41. LAPATINIB DITOSYLATE [Suspect]
     Dosage: UNK
     Dates: start: 20120507
  42. LAPATINIB DITOSYLATE [Suspect]
     Dosage: UNK
     Dates: start: 20110418
  43. LAPATINIB DITOSYLATE [Suspect]
     Dosage: UNK
     Dates: start: 20120316
  44. TAVEGYL [Concomitant]
     Route: 065
  45. ZANTAC [Concomitant]
  46. SOLU-MEDROL [Concomitant]
  47. TEMESTA [Concomitant]
  48. PREDNISOLON [Concomitant]
  49. KYTRIL [Concomitant]
     Route: 065
  50. EMPERAL [Concomitant]
     Route: 065
  51. ZOFRAN [Concomitant]
  52. CORODIL [Concomitant]

REACTIONS (38)
  - Ejection fraction decreased [Unknown]
  - Dysaesthesia [Unknown]
  - Nausea [Recovering/Resolving]
  - Abdominal discomfort [Recovering/Resolving]
  - Headache [Recovering/Resolving]
  - Influenza like illness [Recovering/Resolving]
  - Fatigue [Unknown]
  - Dysgeusia [Recovering/Resolving]
  - Dyspnoea [Recovered/Resolved]
  - Heart rate irregular [Recovering/Resolving]
  - Dry mouth [Unknown]
  - Constipation [Unknown]
  - Nail disorder [Recovered/Resolved]
  - Fluid retention [Not Recovered/Not Resolved]
  - Lymphoedema [Recovered/Resolved]
  - Calcium ionised increased [Unknown]
  - Diarrhoea [Unknown]
  - Sensory disturbance [Unknown]
  - Neurological symptom [Unknown]
  - Skin ulcer [Unknown]
  - Chest pain [Unknown]
  - Sleep disorder [Unknown]
  - Myalgia [Unknown]
  - Malaise [Recovered/Resolved]
  - Neutropenia [Unknown]
  - Rash pustular [Unknown]
  - Skin fissures [Recovered/Resolved]
  - Cough [Unknown]
  - Vulvovaginal dryness [Recovering/Resolving]
  - Nasal ulcer [Recovered/Resolved]
  - Erythema [Unknown]
  - Local swelling [Unknown]
  - Lip swelling [Unknown]
  - Cheilitis [Unknown]
  - Palmar-plantar erythrodysaesthesia syndrome [Recovering/Resolving]
  - Paraesthesia [Recovering/Resolving]
  - Disease progression [Not Recovered/Not Resolved]
  - Neoplasm malignant [Not Recovered/Not Resolved]
